FAERS Safety Report 4483690-7 (Version None)
Quarter: 2004Q4

REPORT INFORMATION
  Report Type: 
  Country: None (occurrence: None)
  Receive Date: 20041021
  Receipt Date: 20041005
  Transmission Date: 20050328
  Serious: Yes (Hospitalization)
  Sender: FDA-Public Use
  Company Number: 205812

PATIENT
  Age: 56 Year
  Sex: Female
  Weight: 59.4212 kg

DRUGS (3)
  1. AVONEX [Suspect]
     Indication: MULTIPLE SCLEROSIS
     Dosage: 30 MCG QW IM
     Route: 030
     Dates: start: 20040702
  2. SEROQUEL [Concomitant]
  3. RITALIN [Concomitant]

REACTIONS (5)
  - AGORAPHOBIA [None]
  - ANXIETY [None]
  - CONDITION AGGRAVATED [None]
  - DEPRESSION [None]
  - MEMORY IMPAIRMENT [None]
